FAERS Safety Report 9894993 (Version 2)
Quarter: 2014Q1

REPORT INFORMATION
  Report Type: Spontaneous
  Country: US (occurrence: US)
  Receive Date: 20140213
  Receipt Date: 20140213
  Transmission Date: 20141002
  Serious: No
  Sender: FDA-Public Use
  Company Number: US-BRISTOL-MYERS SQUIBB COMPANY-17267352

PATIENT
  Age: 49 Year
  Sex: Female
  Weight: 62.58 kg

DRUGS (1)
  1. ORENCIA [Suspect]
     Indication: RHEUMATOID ARTHRITIS
     Dosage: LAST INFUSION:16NOV2012
     Route: 042

REACTIONS (2)
  - Influenza [Unknown]
  - Malaise [Unknown]
